FAERS Safety Report 15008609 (Version 1)
Quarter: 2018Q2

REPORT INFORMATION
  Report Type: Spontaneous
  Country: US (occurrence: US)
  Receive Date: 20180521
  Receipt Date: 20180521
  Transmission Date: 20180711
  Serious: Yes (Hospitalization, Disabling)
  Sender: FDA-Public Use
  Company Number: None

PATIENT
  Age: 66 Year
  Sex: Female

DRUGS (19)
  1. DILTIAZEM. [Concomitant]
     Active Substance: DILTIAZEM
  2. METOLAZONE. [Concomitant]
     Active Substance: METOLAZONE
  3. OXYCODONE [Concomitant]
     Active Substance: OXYCODONE
  4. ATORVASTATIN [Concomitant]
     Active Substance: ATORVASTATIN
  5. GABAPENTIN. [Concomitant]
     Active Substance: GABAPENTIN
  6. POTASSIUM CHLORIDE. [Concomitant]
     Active Substance: POTASSIUM CHLORIDE
  7. TRAZODONE [Concomitant]
     Active Substance: TRAZODONE HYDROCHLORIDE
  8. CEFAZOLIN [Concomitant]
     Active Substance: CEFAZOLIN
  9. LANSOPRAZOLE. [Concomitant]
     Active Substance: LANSOPRAZOLE
  10. METOPROLOL. [Concomitant]
     Active Substance: METOPROLOL
  11. NYSTATIN. [Concomitant]
     Active Substance: NYSTATIN
  12. BISACODYL. [Concomitant]
     Active Substance: BISACODYL
  13. FERROUS SULFATE. [Concomitant]
     Active Substance: FERROUS SULFATE
  14. MAGNESIUM SULFATE. [Concomitant]
     Active Substance: MAGNESIUM SULFATE
  15. ZINC SULFATE [Concomitant]
     Active Substance: ZINC SULFATE\ZINC SULFATE ANHYDROUS
  16. ACETAMINOPHEN. [Concomitant]
     Active Substance: ACETAMINOPHEN
  17. VANCOMYCIN [Concomitant]
     Active Substance: VANCOMYCIN
  18. HEPARIN [Suspect]
     Active Substance: HEPARIN SODIUM
     Indication: ANTICOAGULANT THERAPY
     Dosage: ?          OTHER DOSE:5000-7500 IU;?
     Route: 058
     Dates: start: 20171218, end: 20171225
  19. ASPIRIN. [Concomitant]
     Active Substance: ASPIRIN

REACTIONS (5)
  - Heparin-induced thrombocytopenia [None]
  - Localised infection [None]
  - Leg amputation [None]
  - Cyanosis [None]
  - Gangrene [None]

NARRATIVE: CASE EVENT DATE: 20171225
